FAERS Safety Report 21545177 (Version 6)
Quarter: 2023Q2

REPORT INFORMATION
  Report Type: Report from Study
  Country: CA (occurrence: CA)
  Receive Date: 20221103
  Receipt Date: 20230428
  Transmission Date: 20230722
  Serious: Yes (Hospitalization, Other)
  Sender: FDA-Public Use
  Company Number: CA-JNJFOC-20221061054

PATIENT
  Age: 51 Year
  Sex: Female
  Weight: 89 kg

DRUGS (1)
  1. REMICADE [Suspect]
     Active Substance: INFLIXIMAB
     Indication: Crohn^s disease
     Dosage: 04 NUMBER OF UNITS INVOLVED IN COMPLAINT.?EXPIRY DATE-28-FEB-2025?V5: EXPIRY DATE: 30-JUL-2025
     Route: 041
     Dates: start: 20150303

REACTIONS (2)
  - Breast cancer stage III [Not Recovered/Not Resolved]
  - Metastases to lymph nodes [Unknown]

NARRATIVE: CASE EVENT DATE: 20220101
